FAERS Safety Report 21345659 (Version 1)
Quarter: 2022Q3

REPORT INFORMATION
  Report Type: Report from Study
  Country: CN (occurrence: CN)
  Receive Date: 20220916
  Receipt Date: 20220916
  Transmission Date: 20221027
  Serious: Yes (Death, Hospitalization, Other)
  Sender: FDA-Public Use
  Company Number: CN-NOVARTISPH-NVSC2019CN106181

PATIENT
  Age: 60 Year
  Sex: Male

DRUGS (19)
  1. DOCETAXEL [Suspect]
     Active Substance: DOCETAXEL
     Indication: Oesophageal squamous cell carcinoma metastatic
     Dosage: 113 MG, Q3W
     Route: 042
     Dates: start: 20190716, end: 20191010
  2. CIMETIDINE [Concomitant]
     Active Substance: CIMETIDINE
     Indication: Antacid therapy
     Dosage: UNK
     Route: 042
     Dates: start: 20190916, end: 20190919
  3. CIMETIDINE [Concomitant]
     Active Substance: CIMETIDINE
     Dosage: UNK
     Route: 042
     Dates: start: 20191017, end: 20191020
  4. TROPISETRON HYDROCHLORIDE [Concomitant]
     Active Substance: TROPISETRON HYDROCHLORIDE
     Indication: Prophylaxis
     Dosage: UNK
     Route: 042
     Dates: start: 20190917, end: 20190919
  5. TROPISETRON HYDROCHLORIDE [Concomitant]
     Active Substance: TROPISETRON HYDROCHLORIDE
     Dosage: UNK
     Route: 042
     Dates: start: 20191010, end: 20191012
  6. MANNITOL [Concomitant]
     Active Substance: MANNITOL
     Indication: Intestinal obstruction
     Dosage: UNK
     Route: 048
     Dates: start: 20190929, end: 20190929
  7. ERYTHROPOIETIN [Concomitant]
     Active Substance: ERYTHROPOIETIN
     Indication: Anaemia
     Dosage: UNK
     Route: 058
     Dates: start: 20190919, end: 20190919
  8. ONDANSETRON HYDROCHLORIDE [Concomitant]
     Active Substance: ONDANSETRON HYDROCHLORIDE
     Indication: Prophylaxis
     Dosage: UNK
     Route: 042
     Dates: start: 20190917, end: 20190919
  9. ALBUMIN HUMAN [Concomitant]
     Active Substance: ALBUMIN HUMAN
     Indication: Blood albumin decreased
     Dosage: UNK
     Route: 048
     Dates: start: 20191010, end: 20191012
  10. ALANYL GLUTAMINE [Concomitant]
     Active Substance: ALANYL GLUTAMINE
     Indication: Nutritional supplementation
     Dosage: UNK
     Route: 042
     Dates: start: 20191017, end: 20191020
  11. ASCORBIC ACID [Concomitant]
     Active Substance: ASCORBIC ACID
     Indication: Nutritional supplementation
     Dosage: UNK
     Route: 042
     Dates: start: 20191017, end: 20191020
  12. LOPERAMIDE HYDROCHLORIDE [Concomitant]
     Active Substance: LOPERAMIDE HYDROCHLORIDE
     Indication: Antidiarrhoeal supportive care
     Dosage: UNK
     Route: 042
     Dates: start: 20191017, end: 20191020
  13. SODIUM CHLORIDE [Concomitant]
     Active Substance: SODIUM CHLORIDE
     Indication: Electrolyte substitution therapy
     Dosage: UNK
     Route: 042
     Dates: start: 20191018, end: 20191020
  14. PROTEIN [Concomitant]
     Active Substance: PROTEIN
     Indication: Prophylaxis
     Dosage: UNK
     Route: 048
     Dates: start: 20191018, end: 20191020
  15. CODEINE PHOSPHATE [Concomitant]
     Active Substance: CODEINE PHOSPHATE
     Indication: Product used for unknown indication
     Dosage: UNK
     Route: 048
     Dates: start: 20191018, end: 20191020
  16. MAGNESIUM ASPARTATE\POTASSIUM ASPARTATE [Concomitant]
     Active Substance: MAGNESIUM ASPARTATE\POTASSIUM ASPARTATE
     Indication: Antitussive therapy
     Dosage: UNK
     Route: 048
     Dates: start: 20191018, end: 20191020
  17. CALCIUM GLUCONATE [Concomitant]
     Active Substance: CALCIUM GLUCONATE
     Indication: Nutritional supplementation
     Dosage: UNK
     Route: 065
     Dates: start: 20191018, end: 20191020
  18. FAT EMULSION NOS [Concomitant]
     Active Substance: EGG PHOSPHOLIPIDS\SAFFLOWER OIL\SOYBEAN OIL
     Indication: Nutritional supplementation
     Dosage: UNK
     Route: 042
     Dates: start: 20191019, end: 20191020
  19. MORPHINE HYDROCHLORIDE [Concomitant]
     Active Substance: MORPHINE HYDROCHLORIDE
     Indication: Sedative therapy
     Dosage: UNK
     Route: 042
     Dates: start: 20191020

REACTIONS (3)
  - Death [Fatal]
  - Malaise [Not Recovered/Not Resolved]
  - Acute left ventricular failure [Unknown]

NARRATIVE: CASE EVENT DATE: 20191017
